FAERS Safety Report 10765768 (Version 1)
Quarter: 2015Q1

REPORT INFORMATION
  Report Type: Spontaneous
  Country: US (occurrence: US)
  Receive Date: 20150205
  Receipt Date: 20150205
  Transmission Date: 20150721
  Serious: No
  Sender: FDA-Public Use
  Company Number: US-009507513-1502USA001655

PATIENT
  Age: 63 Year
  Sex: Male

DRUGS (2)
  1. PROBENECID. [Concomitant]
     Active Substance: PROBENECID
  2. NOXAFIL [Suspect]
     Active Substance: POSACONAZOLE
     Indication: FUSARIUM INFECTION
     Dosage: 300 MG, QD
     Dates: start: 20141211

REACTIONS (1)
  - Gastrointestinal tube insertion [Unknown]

NARRATIVE: CASE EVENT DATE: 201412
